FAERS Safety Report 12186950 (Version 1)
Quarter: 2016Q1

REPORT INFORMATION
  Report Type: Spontaneous
  Country: US (occurrence: None)
  Receive Date: 20160316
  Receipt Date: 20160316
  Transmission Date: 20160526
  Serious: Yes (Other)
  Sender: FDA-Public Use
  Company Number: None

PATIENT
  Age: 40 Year
  Sex: Female
  Weight: 65.77 kg

DRUGS (5)
  1. BUTCHERS BROOM [Concomitant]
  2. PARACETAMOL [Concomitant]
     Active Substance: ACETAMINOPHEN
  3. MIRENA [Suspect]
     Active Substance: LEVONORGESTREL
  4. GINKGO BILOBA [Concomitant]
     Active Substance: GINKGO
  5. VITAMIN B [Concomitant]
     Active Substance: VITAMIN B

REACTIONS (6)
  - Weight decreased [None]
  - Headache [None]
  - Body temperature increased [None]
  - Haemorrhage [None]
  - Mass [None]
  - Vomiting [None]

NARRATIVE: CASE EVENT DATE: 20160304
